FAERS Safety Report 20721958 (Version 1)
Quarter: 2022Q2

REPORT INFORMATION
  Report Type: Spontaneous
  Country: US (occurrence: US)
  Receive Date: 20220418
  Receipt Date: 20220418
  Transmission Date: 20220720
  Serious: No
  Sender: FDA-Public Use
  Company Number: US-PFIZER INC-202101082599

PATIENT
  Age: 68 Year
  Sex: Male

DRUGS (1)
  1. XELJANZ [Suspect]
     Active Substance: TOFACITINIB CITRATE
     Indication: Psoriatic arthropathy
     Dosage: 5 MG, 2X/DAY
     Route: 048

REACTIONS (5)
  - Rash [Not Recovered/Not Resolved]
  - Back pain [Not Recovered/Not Resolved]
  - Pityriasis rubra pilaris [Recovering/Resolving]
  - Skin lesion [Unknown]
  - Condition aggravated [Unknown]
